FAERS Safety Report 7577784-7 (Version None)
Quarter: 2011Q2

REPORT INFORMATION
  Report Type: 
  Country: None (occurrence: None)
  Receive Date: 20110628
  Receipt Date: 20110421
  Transmission Date: 20111010
  Serious: Yes (Other)
  Sender: FDA-Public Use
  Company Number: FR-ROCHE-764440

PATIENT
  Age: 49 Year
  Sex: Male

DRUGS (6)
  1. TEMSIROLIMUS [Suspect]
     Indication: RENAL CANCER METASTATIC
     Route: 042
     Dates: start: 20080822
  2. JANUVIA [Concomitant]
     Dates: start: 20091201
  3. PERINDOPRIL ERBUMINE [Concomitant]
     Dates: start: 20100104
  4. BEVACIZUMAB [Suspect]
     Indication: RENAL CANCER METASTATIC
     Route: 042
     Dates: start: 20080822, end: 20100212
  5. AMLODIPINE BESYLATE [Concomitant]
     Dates: start: 20100104
  6. ESIDRIX [Concomitant]
     Dates: start: 20100104

REACTIONS (1)
  - OSTEONECROSIS OF JAW [None]
